FAERS Safety Report 5276494-9 (Version None)
Quarter: 2007Q1

REPORT INFORMATION
  Report Type: 
  Country: None (occurrence: None)
  Receive Date: 20061213
  Receipt Date: 20030922
  Transmission Date: 20070707
  Serious: No
  Sender: FDA-Public Use
  Company Number: 2003UW10661

PATIENT
  Age: 50 Year
  Sex: Female

DRUGS (10)
  1. SEROQUEL [Suspect]
     Indication: SCHIZOAFFECTIVE DISORDER
     Dosage: 800 MG DAILY PO
     Route: 048
  2. LAMICTAL [Concomitant]
  3. EFFEXOR [Concomitant]
  4. TOPAMAX [Concomitant]
  5. ACTOSE [Concomitant]
  6. GLYBURIDE [Concomitant]
  7. CYNTROID [Concomitant]
  8. PROTONIX [Concomitant]
  9. EPIDRIN [Concomitant]
  10. ZESTRIL [Concomitant]

REACTIONS (1)
  - CATARACT [None]
